FAERS Safety Report 16150197 (Version 2)
Quarter: 2019Q2

REPORT INFORMATION
  Report Type: Spontaneous
  Country: FR (occurrence: FR)
  Receive Date: 20190403
  Receipt Date: 20190411
  Transmission Date: 20190711
  Serious: Yes (Death, Hospitalization)
  Sender: FDA-Public Use
  Company Number: FR-TEVA-2019-FR-1032545

PATIENT
  Age: 61 Year
  Sex: Male
  Weight: 136 kg

DRUGS (10)
  1. ZOPICLONE [Concomitant]
     Active Substance: ZOPICLONE
     Route: 065
  2. BISOPROLOL [Concomitant]
     Active Substance: BISOPROLOL
     Route: 065
  3. FLUINDIONE [Concomitant]
     Active Substance: FLUINDIONE
     Route: 065
  4. PERINDOPRIL [Concomitant]
     Active Substance: PERINDOPRIL
     Route: 065
  5. METFORMIN [Concomitant]
     Active Substance: METFORMIN HYDROCHLORIDE
     Route: 065
  6. ALPRAZOLAM. [Concomitant]
     Active Substance: ALPRAZOLAM
     Route: 065
  7. TETRAZEPAM [Concomitant]
     Active Substance: TETRAZEPAM
     Route: 065
  8. TRAMADOL-PARACETAMOL [Concomitant]
     Route: 065
  9. METHOTREXATE. [Suspect]
     Active Substance: METHOTREXATE
     Indication: HYPERSENSITIVITY PNEUMONITIS
     Route: 065
     Dates: start: 201305, end: 201311
  10. AMOXICILLIN. [Suspect]
     Active Substance: AMOXICILLIN
     Indication: DYSPNOEA
     Route: 065
     Dates: start: 201311

REACTIONS (7)
  - Serratia infection [Not Recovered/Not Resolved]
  - Klebsiella infection [Not Recovered/Not Resolved]
  - Drug ineffective [Unknown]
  - Mycobacterium avium complex infection [Not Recovered/Not Resolved]
  - Death [Fatal]
  - Abscess [Recovering/Resolving]
  - Staphylococcal infection [Not Recovered/Not Resolved]

NARRATIVE: CASE EVENT DATE: 201311
